FAERS Safety Report 19754814 (Version 2)
Quarter: 2021Q3

REPORT INFORMATION
  Report Type: Spontaneous
  Country: GB (occurrence: GB)
  Receive Date: 20210827
  Receipt Date: 20210930
  Transmission Date: 20211014
  Serious: Yes (Life-Threatening, Hospitalization, Other)
  Sender: FDA-Public Use
  Company Number: GB-MYLANLABS-2021M1056329

PATIENT
  Age: 33 Year
  Sex: Female

DRUGS (3)
  1. CLOZARIL [Suspect]
     Active Substance: CLOZAPINE
     Indication: SCHIZOPHRENIA
     Dosage: 200MG MANE AND 275 MG NOCTE
     Route: 048
     Dates: start: 20181226
  2. OMEPRAZOLE. [Concomitant]
     Active Substance: OMEPRAZOLE
     Indication: GASTROOESOPHAGEAL REFLUX DISEASE
     Dosage: 20 MILLIGRAM
     Route: 048
  3. SERTRALINE [Concomitant]
     Active Substance: SERTRALINE HYDROCHLORIDE
     Indication: DEPRESSED MOOD
     Dosage: 100 MILLIGRAM
     Route: 048
     Dates: start: 20210417

REACTIONS (1)
  - Suicide attempt [Recovered/Resolved]
